FAERS Safety Report 12249239 (Version 1)
Quarter: 2016Q2

REPORT INFORMATION
  Report Type: Spontaneous
  Country: US (occurrence: None)
  Receive Date: 20160407
  Receipt Date: 20160407
  Transmission Date: 20160815
  Serious: Yes (Other)
  Sender: FDA-Public Use
  Company Number: None

PATIENT
  Age: 55 Year
  Sex: Female

DRUGS (2)
  1. RIBAVIRIN 200 MG ZYDUS [Suspect]
     Active Substance: RIBAVIRIN
     Indication: HEPATITIS C
     Dosage: 600 MG AM AND 400 MG PM
     Route: 048
     Dates: start: 20160125
  2. SOVALDI [Suspect]
     Active Substance: SOFOSBUVIR
     Indication: HEPATITIS C
     Route: 048
     Dates: start: 20160125

REACTIONS (10)
  - Abdominal pain upper [None]
  - Nausea [None]
  - Vomiting [None]
  - Mobility decreased [None]
  - Presyncope [None]
  - Wrong drug administered [None]
  - Urinary tract infection [None]
  - Hyperhidrosis [None]
  - Dizziness [None]
  - Extra dose administered [None]

NARRATIVE: CASE EVENT DATE: 20160404
